FAERS Safety Report 9416778 (Version 1)
Quarter: 2013Q3

REPORT INFORMATION
  Report Type: Spontaneous
  Country: US (occurrence: None)
  Receive Date: 20130719
  Receipt Date: 20130719
  Transmission Date: 20140515
  Serious: Yes (Other)
  Sender: FDA-Public Use
  Company Number: FK201302530

PATIENT
  Sex: 0

DRUGS (2)
  1. MAGNESIUM SULFATE [Suspect]
     Indication: BLOOD MAGNESIUM ABNORMAL
     Dosage: 135 MG, OVER 4 HOURS
     Route: 042
  2. 9% NORMAL SALINE (SODIUM CHLROIDE) [Concomitant]

REACTIONS (5)
  - Medication error [None]
  - Incorrect dose administered [None]
  - Movement disorder [None]
  - Hypotonia [None]
  - Areflexia [None]
